FAERS Safety Report 10102182 (Version 1)
Quarter: 2014Q2

REPORT INFORMATION
  Report Type: Spontaneous
  Country: US (occurrence: US)
  Receive Date: 20140424
  Receipt Date: 20140424
  Transmission Date: 20141212
  Serious: Yes (Other)
  Sender: FDA-Public Use
  Company Number: US-JNJFOC-20140414092

PATIENT
  Age: 44 Year
  Sex: Female

DRUGS (2)
  1. OLYSIO [Suspect]
     Indication: PRODUCT USED FOR UNKNOWN INDICATION
     Route: 065
     Dates: start: 20140326, end: 20140411
  2. SOVALDI [Suspect]
     Indication: PRODUCT USED FOR UNKNOWN INDICATION
     Route: 065
     Dates: start: 20140326, end: 20140411

REACTIONS (3)
  - Blood bilirubin increased [Unknown]
  - Jaundice [Unknown]
  - Off label use [Recovered/Resolved]
